FAERS Safety Report 6675446-1 (Version None)
Quarter: 2010Q2

REPORT INFORMATION
  Report Type: 
  Country: None (occurrence: None)
  Receive Date: 20100409
  Receipt Date: 20100405
  Transmission Date: 20101027
  Serious: Yes (Hospitalization)
  Sender: FDA-Public Use
  Company Number: A0850767A

PATIENT
  Sex: Male
  Weight: 10 kg

DRUGS (1)
  1. FLIXOTIDE [Suspect]
     Indication: ASTHMA
     Dosage: 50MCG FOUR TIMES PER DAY
     Route: 055
     Dates: start: 20090901

REACTIONS (3)
  - BRONCHIOLITIS [None]
  - PNEUMONIA [None]
  - PRODUCT QUALITY ISSUE [None]
